FAERS Safety Report 21382534 (Version 1)
Quarter: 2022Q3

REPORT INFORMATION
  Report Type: Spontaneous
  Country: US (occurrence: None)
  Receive Date: 20220927
  Receipt Date: 20220927
  Transmission Date: 20221027
  Serious: No
  Sender: FDA-Public Use
  Company Number: 2022A304457

PATIENT
  Age: 69 Year
  Sex: Male
  Weight: 98.4 kg

DRUGS (1)
  1. BUDESONIDE\FORMOTEROL\GLYCOPYRRONIUM [Suspect]
     Active Substance: BUDESONIDE\FORMOTEROL\GLYCOPYRRONIUM
     Dosage: 160 MCG/9.0 MCG/4.8 MCG, 2 INHALATIONS ,TWO TIMES A DAY
     Route: 055
     Dates: start: 20220830

REACTIONS (1)
  - Parosmia [Recovered/Resolved]

NARRATIVE: CASE EVENT DATE: 20220830
